FAERS Safety Report 5747555-2 (Version None)
Quarter: 2008Q2

REPORT INFORMATION
  Report Type: 
  Country: None (occurrence: None)
  Receive Date: 20080523
  Receipt Date: 20080513
  Transmission Date: 20081010
  Serious: Yes (Hospitalization)
  Sender: FDA-Public Use
  Company Number: CH-WYE-H04090008

PATIENT
  Age: 41 Year
  Sex: Female

DRUGS (3)
  1. VENLAFAXINE HYDROCHLORIDE [Suspect]
     Dosage: UNKNOWN
  2. TRAZODONE HCL [Suspect]
     Dosage: UNKNOWN
  3. OLANZAPINE [Suspect]
     Dosage: UNKNOWN

REACTIONS (4)
  - ALCOHOL ABUSE [None]
  - DEPRESSIVE SYMPTOM [None]
  - PANIC DISORDER [None]
  - SCHIZOAFFECTIVE DISORDER [None]
